FAERS Safety Report 6814268-5 (Version None)
Quarter: 2010Q2

REPORT INFORMATION
  Report Type: 
  Country: None (occurrence: None)
  Receive Date: 20100629
  Receipt Date: 20100615
  Transmission Date: 20101027
  Serious: Yes (Hospitalization)
  Sender: FDA-Public Use
  Company Number: ACO_01139_2010

PATIENT
  Age: 73 Year
  Sex: Female

DRUGS (10)
  1. AMPYRA [Suspect]
     Indication: DRUG USE FOR UNKNOWN INDICATION
     Dosage: DF ORAL
     Route: 048
     Dates: start: 20100520, end: 20100601
  2. ATENOLOL [Concomitant]
  3. FLAXSEED OIL [Concomitant]
  4. MULTI-VITAMIN [Concomitant]
  5. VITAMIN D [Concomitant]
  6. VITAMIN C [Concomitant]
  7. CALCIUM CARBONATE [Concomitant]
  8. CRANBERRY [Concomitant]
  9. ASPIRIN [Concomitant]
  10. ZOCOR [Concomitant]

REACTIONS (6)
  - DEEP VEIN THROMBOSIS [None]
  - DYSPHAGIA [None]
  - GASTROINTESTINAL HAEMORRHAGE [None]
  - HAEMOGLOBIN DECREASED [None]
  - PNEUMONIA ASPIRATION [None]
  - STATUS EPILEPTICUS [None]
